FAERS Safety Report 13341655 (Version 1)
Quarter: 2017Q1

REPORT INFORMATION
  Report Type: Spontaneous
  Country: US (occurrence: US)
  Receive Date: 20170316
  Receipt Date: 20170316
  Transmission Date: 20170428
  Serious: No
  Sender: FDA-Public Use
  Company Number: US-ASTRAZENECA-2017SE24803

PATIENT
  Age: 75 Year
  Sex: Female

DRUGS (5)
  1. SYMBICORT [Suspect]
     Active Substance: BUDESONIDE\FORMOTEROL FUMARATE DIHYDRATE
     Indication: ASTHMA
     Dosage: 160/4.5 MCG, 60 INHALATIONS
     Route: 055
  2. LYSENE [Concomitant]
     Indication: NASOPHARYNGITIS
     Dosage: AS REQUIRED
  3. FLOVENT [Concomitant]
     Active Substance: FLUTICASONE PROPIONATE
     Dosage: AS REQUIRED
  4. SEROVENT [Concomitant]
     Dosage: AS REQUIRED
  5. VITAMIN C [Concomitant]
     Active Substance: ASCORBIC ACID
     Indication: NASOPHARYNGITIS
     Dosage: AS REQUIRED

REACTIONS (1)
  - Sciatica [Not Recovered/Not Resolved]
